FAERS Safety Report 7635792-1 (Version None)
Quarter: 2011Q3

REPORT INFORMATION
  Report Type: 
  Country: None (occurrence: None)
  Receive Date: 20110726
  Receipt Date: 20110718
  Transmission Date: 20111222
  Serious: Yes (Hospitalization)
  Sender: FDA-Public Use
  Company Number: FR-AMGEN-QUU442622

PATIENT
  Age: 80 Year
  Sex: Female

DRUGS (5)
  1. ZOLEDRONIC ACID [Concomitant]
     Dosage: 5 MG, UNK
     Route: 042
     Dates: start: 20100722, end: 20100722
  2. DURAGESIC-12 [Concomitant]
  3. ARANESP [Suspect]
     Indication: ANAEMIA OF MALIGNANT DISEASE
     Dosage: 300 A?G, UNK
     Route: 042
     Dates: start: 20100728, end: 20100917
  4. TIOTROPIUM BROMIDE [Concomitant]
     Dosage: UNK UNK, UNK
     Route: 048
  5. DEXTROPROPOXYPHENE [Concomitant]
     Dosage: UNK UNK, UNK
     Route: 048

REACTIONS (1)
  - ISCHAEMIA [None]
